FAERS Safety Report 20579098 (Version 1)
Quarter: 2022Q1

REPORT INFORMATION
  Report Type: Spontaneous
  Country: AU (occurrence: AU)
  Receive Date: 20220310
  Receipt Date: 20220310
  Transmission Date: 20220423
  Serious: Yes (Hospitalization)
  Sender: FDA-Public Use
  Company Number: AU-CELGENE-AUS-20220302630

PATIENT
  Age: 42 Year

DRUGS (11)
  1. AZACITIDINE [Suspect]
     Active Substance: AZACITIDINE
     Indication: Product used for unknown indication
     Dosage: 200 MILLIGRAM
     Route: 065
     Dates: start: 20211001
  2. AZACITIDINE [Suspect]
     Active Substance: AZACITIDINE
     Dosage: 200 MILLIGRAM
     Route: 065
     Dates: start: 20220120
  3. CARBOPLATIN [Suspect]
     Active Substance: CARBOPLATIN
     Indication: Product used for unknown indication
     Dosage: 600 MILLIGRAM
     Route: 065
     Dates: start: 20211001
  4. CARBOPLATIN [Suspect]
     Active Substance: CARBOPLATIN
     Dosage: 600 MILLIGRAM
     Route: 065
     Dates: start: 20220121
  5. NIVOLUMAB [Suspect]
     Active Substance: NIVOLUMAB
     Indication: Product used for unknown indication
     Dosage: 360 MILLIGRAM
     Route: 065
     Dates: start: 20211001
  6. NIVOLUMAB [Suspect]
     Active Substance: NIVOLUMAB
     Dosage: 360 MILLIGRAM
     Route: 065
     Dates: start: 20220211
  7. IPILIMUMAB [Suspect]
     Active Substance: IPILIMUMAB
     Indication: Product used for unknown indication
     Dosage: 86 MILLIGRAM
     Route: 065
     Dates: start: 20211001
  8. IPILIMUMAB [Suspect]
     Active Substance: IPILIMUMAB
     Dosage: 86 MILLIGRAM
     Route: 065
     Dates: start: 20220211
  9. GENTAMICIN [Concomitant]
     Active Substance: GENTAMICIN
     Indication: Pyrexia
     Dosage: 400 MILLIGRAM
     Route: 041
     Dates: start: 20220221, end: 20220221
  10. PIPERACILLIN SODIUM\TAZOBACTAM SODIUM [Concomitant]
     Active Substance: PIPERACILLIN SODIUM\TAZOBACTAM SODIUM
     Indication: Pyrexia
     Dosage: 13.5 GRAM
     Route: 041
     Dates: start: 20220221, end: 20220224
  11. CEPHALEXIN [Concomitant]
     Active Substance: CEPHALEXIN
     Indication: Pyrexia
     Dosage: 2000 MILLIGRAM
     Route: 048
     Dates: start: 20220224, end: 20220226

REACTIONS (1)
  - COVID-19 [Recovered/Resolved]

NARRATIVE: CASE EVENT DATE: 20220221
